FAERS Safety Report 8588226-7 (Version None)
Quarter: 2012Q3

REPORT INFORMATION
  Report Type: 
  Country: None (occurrence: None)
  Receive Date: 20120813
  Receipt Date: 20120730
  Transmission Date: 20120928
  Serious: Yes (Other)
  Sender: FDA-Public Use
  Company Number: AT-US-EMD SERONO, INC.-7151055

PATIENT
  Age: 30 Year
  Sex: Female
  Weight: 85 kg

DRUGS (4)
  1. INTERFERON BETA-1A [Suspect]
  2. INTERFERON BETA-1A [Suspect]
     Indication: MULTIPLE SCLEROSIS RELAPSE
  3. MITOXANTRONE [Suspect]
     Indication: MULTIPLE SCLEROSIS RELAPSE
     Dosage: CUMULATIVE DOSAGE OF 30 MG/M2
  4. PREDNISOLONE [Suspect]
     Indication: MULTIPLE SCLEROSIS RELAPSE

REACTIONS (1)
  - MITOCHONDRIAL CYTOPATHY [None]
